FAERS Safety Report 9328283 (Version 1)
Quarter: 2013Q2

REPORT INFORMATION
  Report Type: Spontaneous
  Country: US (occurrence: US)
  Receive Date: 20130604
  Receipt Date: 20130604
  Transmission Date: 20140414
  Serious: Yes (Other)
  Sender: FDA-Public Use
  Company Number: US-UCBSA-086445

PATIENT
  Age: 51 Year
  Sex: Female

DRUGS (5)
  1. CIMZIA [Suspect]
     Indication: CROHN^S DISEASE
     Dosage: DOSE STRENGTH: 200 MG
     Route: 058
     Dates: start: 20130214, end: 20130513
  2. REMICADE [Suspect]
  3. BENADRYL [Concomitant]
  4. ACETAMINOPHEN [Concomitant]
  5. SOLUMEDROL [Concomitant]

REACTIONS (2)
  - Lupus-like syndrome [Not Recovered/Not Resolved]
  - Myalgia [Unknown]
